FAERS Safety Report 5729332-1 (Version None)
Quarter: 2008Q2

REPORT INFORMATION
  Report Type: 
  Country: None (occurrence: None)
  Receive Date: 20080506
  Receipt Date: 20080417
  Transmission Date: 20081010
  Serious: Yes (Hospitalization)
  Sender: FDA-Public Use
  Company Number: JP-ASTRAZENECA-2008SE02238

PATIENT
  Age: 32735 Day
  Sex: Male

DRUGS (11)
  1. BLOPRESS TABLETS 8 [Suspect]
     Indication: HYPERTENSION
     Route: 048
     Dates: start: 20040205, end: 20080415
  2. PANSPORIN T [Concomitant]
     Indication: PNEUMONIA
     Route: 065
     Dates: start: 20080402, end: 20080407
  3. AMLODIN [Concomitant]
     Route: 048
     Dates: start: 20040304
  4. AMARYL [Concomitant]
     Route: 048
     Dates: start: 20031016, end: 20060419
  5. AMARYL [Concomitant]
     Route: 048
     Dates: start: 20060420
  6. CYANOCOBALAMIN [Concomitant]
     Route: 048
     Dates: start: 20060420
  7. LASIX [Concomitant]
     Route: 048
     Dates: start: 20070607, end: 20080124
  8. TSUMURA SHOFU-SAN [Concomitant]
     Route: 048
     Dates: start: 20040304, end: 20060420
  9. DALACIN-S [Concomitant]
     Indication: PNEUMONIA
     Route: 042
     Dates: start: 20080402, end: 20080407
  10. MINOMYCIN [Concomitant]
     Indication: PNEUMONIA
     Route: 065
     Dates: start: 20080408
  11. TIENAM(IMIPENEM/CILASTATIN SODIUM) [Concomitant]
     Indication: PNEUMONIA
     Route: 042
     Dates: start: 20080408

REACTIONS (1)
  - DYSGEUSIA [None]
